FAERS Safety Report 6259336-4 (Version None)
Quarter: 2009Q3

REPORT INFORMATION
  Report Type: 
  Country: None (occurrence: None)
  Receive Date: 20090707
  Receipt Date: 20090701
  Transmission Date: 20100115
  Serious: Yes (Death)
  Sender: FDA-Public Use
  Company Number: VE-SANOFI-SYNTHELABO-A01200906960

PATIENT
  Age: 67 Year
  Sex: Male
  Weight: 88.5 kg

DRUGS (1)
  1. ELOXATIN [Suspect]
     Indication: COLON CANCER
     Route: 041
     Dates: start: 20090623, end: 20090623

REACTIONS (4)
  - CHEST PAIN [None]
  - DEATH [None]
  - FATIGUE [None]
  - FEELING COLD [None]
